FAERS Safety Report 16809916 (Version 1)
Quarter: 2019Q3

REPORT INFORMATION
  Report Type: Spontaneous
  Country: US (occurrence: US)
  Receive Date: 20190916
  Receipt Date: 20190916
  Transmission Date: 20191005
  Serious: No
  Sender: FDA-Public Use
  Company Number: US-AMGEN-USASP2019150164

PATIENT
  Sex: Male

DRUGS (9)
  1. LISINOPRIL. [Concomitant]
     Active Substance: LISINOPRIL
     Dosage: 10 MILLIGRAM
  2. PANTOPRAZOLE [Concomitant]
     Active Substance: PANTOPRAZOLE
     Dosage: 40 MILLIGRAM
  3. ENBREL [Suspect]
     Active Substance: ETANERCEPT
     Indication: PSORIASIS
     Dosage: 50 MILLIGRAM, QWK
     Route: 058
  4. ALLOPURINOL. [Concomitant]
     Active Substance: ALLOPURINOL
     Dosage: 300 MILLIGRAM
  5. VITAMIN E [Concomitant]
     Active Substance: .ALPHA.-TOCOPHEROL
     Dosage: 1000 UNITS
  6. PROSCAR [Concomitant]
     Active Substance: FINASTERIDE
     Dosage: 5 MILLIGRAM
  7. SOTALOL HCL [Concomitant]
     Active Substance: SOTALOL
     Dosage: 160 MILLIGRAM
  8. ACYCLOVIR [ACICLOVIR] [Concomitant]
     Active Substance: ACYCLOVIR
     Dosage: 800 MILLIGRAM
  9. HYDROCHLOROTH [Concomitant]
     Active Substance: HYDROCHLOROTHIAZIDE
     Dosage: 21.5 MILLIGRAM

REACTIONS (1)
  - Surgery [Unknown]
